FAERS Safety Report 5320317-6 (Version None)
Quarter: 2007Q2

REPORT INFORMATION
  Report Type: 
  Country: None (occurrence: None)
  Receive Date: 20070509
  Receipt Date: 20070426
  Transmission Date: 20071010
  Serious: Yes (Disabling)
  Sender: FDA-Public Use
  Company Number: GB-ASTRAZENECA-2007GB00907

PATIENT
  Age: 70 Year
  Sex: Male
  Weight: 90 kg

DRUGS (3)
  1. CRESTOR [Suspect]
     Indication: BLOOD CHOLESTEROL INCREASED
     Route: 048
     Dates: start: 20050815, end: 20060620
  2. ASPIRIN [Concomitant]
     Indication: CORONARY ARTERY DISEASE
     Route: 048
     Dates: start: 19990708
  3. RANITIDINE [Concomitant]
     Indication: DYSPEPSIA
     Route: 048
     Dates: start: 20051128

REACTIONS (5)
  - ARTHRALGIA [None]
  - ATRIAL FIBRILLATION [None]
  - OEDEMA PERIPHERAL [None]
  - PALPITATIONS [None]
  - VENTRICULAR EXTRASYSTOLES [None]
